FAERS Safety Report 6737427-9 (Version None)
Quarter: 2010Q2

REPORT INFORMATION
  Report Type: 
  Country: None (occurrence: None)
  Receive Date: 20100524
  Receipt Date: 20100513
  Transmission Date: 20101027
  Serious: Yes (Other)
  Sender: FDA-Public Use
  Company Number: US-BAYER-200943720NA

PATIENT
  Age: 19 Year
  Sex: Female
  Weight: 64 kg

DRUGS (1)
  1. MIRENA [Suspect]
     Indication: DRUG USE FOR UNKNOWN INDICATION
     Dosage: CONTINUOUS
     Route: 015
     Dates: start: 20071126, end: 20091223

REACTIONS (5)
  - DEVICE DISLOCATION [None]
  - DEVICE EXPULSION [None]
  - PREGNANCY INDUCED HYPERTENSION [None]
  - PREGNANCY WITH CONTRACEPTIVE DEVICE [None]
  - PROCEDURAL PAIN [None]
